FAERS Safety Report 4285282-1 (Version None)
Quarter: 2004Q1

REPORT INFORMATION
  Report Type: 
  Country: None (occurrence: None)
  Receive Date: 20040202
  Receipt Date: 20040116
  Transmission Date: 20041129
  Serious: Yes (Hospitalization)
  Sender: FDA-Public Use
  Company Number: 190758

PATIENT
  Age: 29 Year
  Sex: Male
  Weight: 68.0396 kg

DRUGS (5)
  1. AVONEX [Suspect]
     Indication: MULTIPLE SCLEROSIS
     Dosage: 30 MCG QW IM
     Route: 042
     Dates: start: 19970101
  2. MITOXANTRONE [Concomitant]
  3. WELLBUTRIN SR [Concomitant]
  4. VIVACTIL [Concomitant]
  5. CYTOMEL [Concomitant]

REACTIONS (4)
  - BRAIN DAMAGE [None]
  - COGNITIVE DISORDER [None]
  - CONVULSION [None]
  - MULTIPLE SCLEROSIS RELAPSE [None]
